FAERS Safety Report 15212964 (Version 2)
Quarter: 2018Q3

REPORT INFORMATION
  Report Type: Report from Study
  Country: MX (occurrence: MX)
  Receive Date: 20180730
  Receipt Date: 20180809
  Transmission Date: 20181010
  Serious: Yes (Life-Threatening, Hospitalization, Other)
  Sender: FDA-Public Use
  Company Number: MX-EMD SERONO-E2B_90053187

PATIENT
  Age: 34 Year
  Sex: Male

DRUGS (2)
  1. REBIF [Suspect]
     Active Substance: INTERFERON BETA-1A
     Dosage: MONDAY, WEDNESDAY AND FRIDAY
     Route: 058
     Dates: start: 20180723
  2. REBIF [Suspect]
     Active Substance: INTERFERON BETA-1A
     Indication: MULTIPLE SCLEROSIS
     Dosage: NEW FORMULATION
     Route: 058
     Dates: start: 20151115, end: 20180522

REACTIONS (5)
  - Nervousness [Unknown]
  - Epilepsy [Recovered/Resolved]
  - Respiratory failure [Recovered/Resolved]
  - Brain hypoxia [Recovered/Resolved]
  - Pulse absent [Recovered/Resolved]

NARRATIVE: CASE EVENT DATE: 20180522
